FAERS Safety Report 24981830 (Version 1)
Quarter: 2025Q1

REPORT INFORMATION
  Report Type: Spontaneous
  Country: US (occurrence: None)
  Receive Date: 20250218
  Receipt Date: 20250218
  Transmission Date: 20250409
  Serious: Yes (Other)
  Sender: FDA-CTU
  Company Number: None

PATIENT
  Sex: Female

DRUGS (7)
  1. ENBREL [Suspect]
     Active Substance: ETANERCEPT
     Indication: Drug therapy
     Dosage: OTHER QUANTITY : INJECT 1 PEN (50MG) UNDER THE SKIN ;?FREQUENCY : WEEKLY;?
     Route: 058
     Dates: start: 20220422
  2. CALCIUM [Concomitant]
     Active Substance: CALCIUM
  3. IRON [Concomitant]
     Active Substance: IRON
  4. VITAMINS [Concomitant]
     Active Substance: VITAMINS
  5. RECLAST [Concomitant]
     Active Substance: ZOLEDRONIC ACID
  6. STOOL SOFTNR [Concomitant]
  7. VITAMIN D [Concomitant]
     Active Substance: VITAMIN D NOS

REACTIONS (3)
  - Surgery [None]
  - Pain [None]
  - Therapy interrupted [None]
